FAERS Safety Report 8158188-5 (Version None)
Quarter: 2012Q1

REPORT INFORMATION
  Report Type: 
  Country: None (occurrence: None)
  Receive Date: 20120222
  Receipt Date: 20120209
  Transmission Date: 20120608
  Serious: Yes (Other)
  Sender: FDA-Public Use
  Company Number: ES-MYLANLABS-2012S1002941

PATIENT
  Age: 85 Year
  Sex: Female

DRUGS (5)
  1. RISPERIDONE [Suspect]
     Indication: SCHIZOPHRENIA
     Route: 065
     Dates: start: 20110121
  2. ARICEPT [Concomitant]
     Indication: PRODUCT USED FOR UNKNOWN INDICATION
  3. OMEPRAZOL BEXAL [Concomitant]
     Indication: PRODUCT USED FOR UNKNOWN INDICATION
  4. SOMAZINA /00434801/ [Concomitant]
     Indication: PRODUCT USED FOR UNKNOWN INDICATION
  5. VALSARTAN [Concomitant]
     Indication: PRODUCT USED FOR UNKNOWN INDICATION

REACTIONS (1)
  - SCHIZOPHRENIA [None]
